FAERS Safety Report 10818586 (Version 2)
Quarter: 2015Q1

REPORT INFORMATION
  Report Type: Spontaneous
  Country: IT (occurrence: IT)
  Receive Date: 20150218
  Receipt Date: 20150302
  Transmission Date: 20150721
  Serious: Yes (Other)
  Sender: FDA-Public Use
  Company Number: IT-PFIZER INC-2015064172

PATIENT
  Age: 25 Year
  Sex: Male

DRUGS (4)
  1. LEMTRADA [Suspect]
     Active Substance: ALEMTUZUMAB
     Indication: RELAPSING-REMITTING MULTIPLE SCLEROSIS
     Dosage: 24 MG, CYCLIC
     Route: 042
     Dates: start: 20150112
  2. ACICLOVIR EG [Suspect]
     Active Substance: ACYCLOVIR
     Indication: ANTIVIRAL PROPHYLAXIS
     Dosage: 400 MG, DAILY
     Route: 048
     Dates: start: 20150111, end: 20150113
  3. SOLU-MEDROL [Suspect]
     Active Substance: METHYLPREDNISOLONE SODIUM SUCCINATE
     Indication: ANAPHYLAXIS PROPHYLAXIS
     Dosage: 1 G, DAILY
     Route: 042
     Dates: start: 20150112
  4. TRIMETON [Concomitant]
     Active Substance: CHLORPHENIRAMINE MALEATE
     Indication: ANAPHYLAXIS PROPHYLAXIS
     Dosage: 10 MG, UNK
     Route: 042
     Dates: start: 20150112, end: 20150113

REACTIONS (2)
  - Renal tubular disorder [Recovered/Resolved]
  - Glycosuria [Recovered/Resolved]

NARRATIVE: CASE EVENT DATE: 20150113
